FAERS Safety Report 16862187 (Version 3)
Quarter: 2020Q1

REPORT INFORMATION
  Report Type: Report from Study
  Country: ES (occurrence: ES)
  Receive Date: 20190927
  Receipt Date: 20200121
  Transmission Date: 20200409
  Serious: Yes (Hospitalization, Other)
  Sender: FDA-Public Use
  Company Number: ES-TAIHO ONCOLOGY  INC-IM-2019-00532

PATIENT
  Age: 67 Year
  Sex: Male
  Weight: 74 kg

DRUGS (8)
  1. OXALIPLATIN. [Suspect]
     Active Substance: OXALIPLATIN
     Dosage: 153.85 MG (85 MG/M2), ON DAY 1 OF EACH 14-DAY CYCLE
     Route: 042
     Dates: start: 20181218, end: 20190117
  2. OXALIPLATIN. [Suspect]
     Active Substance: OXALIPLATIN
     Indication: COLON CANCER METASTATIC
     Dosage: 153.85 MG (85 MG/M2), ON DAY 1 OF EACH 14-DAY CYCLE
     Route: 042
     Dates: start: 20180926, end: 20181123
  3. BEVACIZUMAB. [Suspect]
     Active Substance: BEVACIZUMAB
     Dosage: 370 MG (5 MG/M2),  ON DAY 1 OF EACH 14-DAY CYCLE
     Route: 042
     Dates: start: 20190314, end: 20190917
  4. BEVACIZUMAB. [Suspect]
     Active Substance: BEVACIZUMAB
     Indication: COLON CANCER METASTATIC
     Dosage: 370 MG (5 MG/M2),  ON DAY 1 OF EACH 14-DAY CYCLE
     Route: 042
     Dates: start: 20180926, end: 20181123
  5. BEVACIZUMAB. [Suspect]
     Active Substance: BEVACIZUMAB
     Dosage: 370 MG (5 MG/M2),  ON DAY 1 OF EACH 14-DAY CYCLE
     Route: 042
     Dates: start: 20181218, end: 20190103
  6. TAMSULOSIN [Concomitant]
     Active Substance: TAMSULOSIN
     Indication: BENIGN PROSTATIC HYPERPLASIA
     Dosage: 0.4 MG, QD
     Route: 048
     Dates: start: 2016
  7. LONSURF [Suspect]
     Active Substance: TIPIRACIL HYDROCHLORIDE\TRIFLURIDINE
     Dosage: 60 MG (35 MG/M2), BID, ON DAYS 1-5 OF EACH 14-DAY CYCLE
     Route: 048
     Dates: start: 20181218, end: 20190920
  8. LONSURF [Suspect]
     Active Substance: TIPIRACIL HYDROCHLORIDE\TRIFLURIDINE
     Indication: COLON CANCER METASTATIC
     Dosage: 60 MG (35 MG/M2), BID, ON DAYS 1-5 OF EACH 14-DAY CYCLE
     Route: 048
     Dates: start: 20180926, end: 20181127

REACTIONS (1)
  - Myocardial infarction [Recovered/Resolved]

NARRATIVE: CASE EVENT DATE: 20190921
